FAERS Safety Report 25033236 (Version 1)
Quarter: 2025Q1

REPORT INFORMATION
  Report Type: Spontaneous
  Country: RU (occurrence: RU)
  Receive Date: 20250303
  Receipt Date: 20250303
  Transmission Date: 20250409
  Serious: Yes (Hospitalization)
  Sender: ELI LILLY AND COMPANY
  Company Number: RU-ELI_LILLY_AND_COMPANY-RU202502020371

PATIENT
  Age: 64 Year
  Sex: Female

DRUGS (7)
  1. HUMALOG MIX50/50 [Suspect]
     Active Substance: INSULIN LISPRO
     Indication: Type 2 diabetes mellitus
     Route: 058
     Dates: start: 20231111, end: 20231205
  2. MOXONIDINE [Concomitant]
     Active Substance: MOXONIDINE
     Indication: Diabetes mellitus
     Dates: start: 20231025, end: 20231205
  3. BISOPROLOL [Concomitant]
     Active Substance: BISOPROLOL
     Indication: Diabetes mellitus
     Dates: start: 20231025, end: 20231205
  4. METFORMIN [Concomitant]
     Active Substance: METFORMIN HYDROCHLORIDE
     Indication: Diabetes mellitus
     Dates: start: 20231025, end: 20231205
  5. PHOSPHOGLIV [GLYCYRRHIZIC ACID;PHOSPHOLIPIDS] [Concomitant]
     Indication: Gastritis
     Dates: start: 20231025, end: 20231205
  6. OMEPRAZOLE [Concomitant]
     Active Substance: OMEPRAZOLE
     Indication: Gastritis
     Dates: start: 20231025, end: 20231205
  7. INDAPAMIDE [Concomitant]
     Active Substance: INDAPAMIDE
     Indication: Diabetes mellitus
     Dates: start: 20231025, end: 20231205

REACTIONS (2)
  - Hyperglycaemia [Recovering/Resolving]
  - Depressed level of consciousness [Recovering/Resolving]
